FAERS Safety Report 5701938-5 (Version None)
Quarter: 2008Q2

REPORT INFORMATION
  Report Type: 
  Country: None (occurrence: None)
  Receive Date: 20080411
  Receipt Date: 20080402
  Transmission Date: 20081010
  Serious: Yes (Hospitalization)
  Sender: FDA-Public Use
  Company Number: PHHO2008FR03800

PATIENT
  Age: 70 Year
  Sex: Male
  Weight: 103 kg

DRUGS (4)
  1. ZOLEDRONIC ACID [Suspect]
     Indication: PROSTATE CANCER
     Dosage: 4 MG EV 3 MONTHS
     Route: 042
     Dates: start: 20060308, end: 20071211
  2. ZOLADEX [Concomitant]
  3. ANDROCUR [Concomitant]
  4. COTAREG [Concomitant]

REACTIONS (9)
  - ARRHYTHMIA [None]
  - ATRIAL FIBRILLATION [None]
  - ATRIOVENTRICULAR BLOCK [None]
  - BRADYCARDIA [None]
  - CARDIAC PACEMAKER INSERTION [None]
  - DIZZINESS [None]
  - DYSPNOEA [None]
  - PALPITATIONS [None]
  - VERTIGO [None]
